FAERS Safety Report 5254283-9 (Version None)
Quarter: 2007Q1

REPORT INFORMATION
  Report Type: 
  Country: None (occurrence: None)
  Receive Date: 20070302
  Receipt Date: 20070221
  Transmission Date: 20070707
  Serious: Yes (Hospitalization)
  Sender: FDA-Public Use
  Company Number: FR-GLAXOSMITHKLINE-B0459809A

PATIENT
  Age: 77 Year
  Sex: Female
  Weight: 50 kg

DRUGS (6)
  1. AUGMENTIN [Suspect]
     Indication: PYREXIA
     Route: 048
     Dates: start: 20070127, end: 20070129
  2. NOVATREX [Suspect]
     Indication: RHEUMATOID ARTHRITIS
     Dosage: 2.5MG SEE DOSAGE TEXT
     Route: 048
     Dates: end: 20070130
  3. RISPERDAL [Concomitant]
     Dosage: 1UNIT PER DAY
     Route: 048
     Dates: start: 20070125
  4. NOROXIN [Concomitant]
     Indication: URINARY TRACT INFECTION
     Route: 048
     Dates: start: 20070105, end: 20070112
  5. TRANXENE [Concomitant]
     Dosage: 5MG PER DAY
     Route: 048
     Dates: start: 20070125
  6. TIAPRIDAL [Concomitant]
     Dates: end: 20070125

REACTIONS (4)
  - DRUG INTERACTION [None]
  - PANCYTOPENIA [None]
  - PYREXIA [None]
  - RENAL FAILURE [None]
